FAERS Safety Report 8480875-X (Version None)
Quarter: 2012Q2

REPORT INFORMATION
  Report Type: 
  Country: None (occurrence: None)
  Receive Date: 20120625
  Receipt Date: 20120531
  Transmission Date: 20120825
  Serious: Yes (Hospitalization)
  Sender: FDA-Public Use
  Company Number: 2012-002143

PATIENT
  Age: 26 Year
  Sex: Male

DRUGS (1)
  1. DORYX [Suspect]
     Dosage: 200 MG, ORAL
     Route: 048
     Dates: start: 20120209, end: 20120404

REACTIONS (8)
  - MALAISE [None]
  - ANXIETY [None]
  - PANIC ATTACK [None]
  - DISTURBANCE IN ATTENTION [None]
  - FATIGUE [None]
  - DIZZINESS [None]
  - DEPRESSION [None]
  - NEGATIVE THOUGHTS [None]
